FAERS Safety Report 5081505-X (Version None)
Quarter: 2006Q3

REPORT INFORMATION
  Report Type: 
  Country: None (occurrence: None)
  Receive Date: 20060811
  Receipt Date: 20060726
  Transmission Date: 20061208
  Serious: Yes (Other)
  Sender: FDA-Public Use
  Company Number: US-2005-020812

PATIENT
  Age: 39 Year
  Sex: Female

DRUGS (1)
  1. BETASERON [Suspect]
     Indication: RELAPSING-REMITTING MULTIPLE SCLEROSIS
     Dosage: 2 MIU, EVERY 2D, SUBCUTANEOUS
     Route: 058
     Dates: start: 20050914

REACTIONS (5)
  - ARRHYTHMIA [None]
  - CHEST PAIN [None]
  - FEELING HOT [None]
  - PALPITATIONS [None]
  - TACHYCARDIA [None]
